FAERS Safety Report 21812828 (Version 1)
Quarter: 2023Q1

REPORT INFORMATION
  Report Type: Spontaneous
  Country: FR (occurrence: FR)
  Receive Date: 20230103
  Receipt Date: 20230103
  Transmission Date: 20230418
  Serious: Yes (Death, Life-Threatening)
  Sender: FDA-Public Use
  Company Number: None

PATIENT
  Age: 56 Year
  Sex: Male
  Weight: 82 kg

DRUGS (3)
  1. ROCURONIUM [Suspect]
     Active Substance: ROCURONIUM BROMIDE
     Indication: Anaesthesia
     Dosage: 1 DOSAGE FORM
     Route: 042
     Dates: start: 20220907, end: 20220907
  2. SUFENTANIL [Suspect]
     Active Substance: SUFENTANIL
     Indication: Anaesthesia
     Dosage: 1 DOSAGE FORM
     Route: 042
     Dates: start: 20220907, end: 20220907
  3. PROPOFOL LIPURO [Suspect]
     Active Substance: PROPOFOL
     Indication: Anaesthesia
     Dosage: 1 DOSAGE FORM (1 TOTAL)
     Route: 042
     Dates: start: 20220907, end: 20220907

REACTIONS (3)
  - Cardiac arrest [Fatal]
  - Anaphylactic shock [Fatal]
  - Bradycardia [Not Recovered/Not Resolved]

NARRATIVE: CASE EVENT DATE: 20220907
